FAERS Safety Report 8151866-3 (Version None)
Quarter: 2012Q1

REPORT INFORMATION
  Report Type: 
  Country: None (occurrence: None)
  Receive Date: 20120221
  Receipt Date: 20120210
  Transmission Date: 20120608
  Serious: No
  Sender: FDA-Public Use
  Company Number: US-BIOGENIDEC-2012BI005554

PATIENT
  Sex: Female

DRUGS (4)
  1. AVONEX [Concomitant]
     Indication: MULTIPLE SCLEROSIS
     Route: 030
     Dates: start: 20070613
  2. TYSABRI [Suspect]
     Route: 042
     Dates: start: 20120118
  3. AVONEX [Concomitant]
     Route: 030
  4. TYSABRI [Suspect]
     Indication: MULTIPLE SCLEROSIS
     Route: 042
     Dates: start: 20080401, end: 20080819

REACTIONS (2)
  - VOMITING [None]
  - MEMORY IMPAIRMENT [None]
